FAERS Safety Report 4412880-4 (Version None)
Quarter: 2004Q3

REPORT INFORMATION
  Report Type: 
  Country: None (occurrence: None)
  Receive Date: 20040730
  Receipt Date: 20040730
  Transmission Date: 20050211
  Serious: Yes (Disabling)
  Sender: FDA-Public Use
  Company Number: None

PATIENT
  Age: 73 Year
  Sex: Female
  Weight: 45.8133 kg

DRUGS (3)
  1. ZYVOX [Suspect]
     Indication: ABSCESS
     Dosage: 300  MG BID
  2. ZYVOX [Suspect]
     Indication: ATYPICAL MYCOBACTERIAL INFECTION
     Dosage: 300  MG BID
  3. BIAXIN [Suspect]
     Indication: LUNG INFECTION
     Dosage: 250 MG BID

REACTIONS (1)
  - OPTIC NEUROPATHY [None]
